FAERS Safety Report 25163091 (Version 1)
Quarter: 2025Q2

REPORT INFORMATION
  Report Type: Spontaneous
  Country: SA (occurrence: SA)
  Receive Date: 20250404
  Receipt Date: 20250404
  Transmission Date: 20250717
  Serious: Yes (Other)
  Sender: BAUSCH AND LOMB
  Company Number: SA-BAUSCHBL-2025BNL005524

PATIENT
  Age: 23 Year
  Sex: Male

DRUGS (1)
  1. PREDNISOLONE [Suspect]
     Active Substance: PREDNISOLONE
     Indication: Facial paralysis
     Route: 065

REACTIONS (1)
  - Therapy partial responder [Unknown]
